FAERS Safety Report 23327922 (Version 3)
Quarter: 2024Q1

REPORT INFORMATION
  Report Type: Spontaneous
  Country: JP (occurrence: JP)
  Receive Date: 20231221
  Receipt Date: 20240315
  Transmission Date: 20240409
  Serious: Yes (Hospitalization)
  Sender: FDA-Public Use
  Company Number: JP-RADIUS HEALTH INC.-2023JP006568

PATIENT
  Age: 82 Year
  Sex: Female

DRUGS (2)
  1. ABALOPARATIDE [Suspect]
     Active Substance: ABALOPARATIDE
     Indication: Osteoporosis
     Dosage: 80 MICROGRAM, QD
     Route: 058
     Dates: start: 20231110, end: 20231110
  2. ABALOPARATIDE [Suspect]
     Active Substance: ABALOPARATIDE
     Dosage: 80 MICROGRAM, QD
     Route: 058
     Dates: start: 20231113, end: 20231116

REACTIONS (7)
  - Nausea [Recovered/Resolved]
  - Headache [Recovered/Resolved]
  - Vomiting [Recovered/Resolved]
  - Herpes zoster [Recovered/Resolved with Sequelae]
  - Rash [Recovered/Resolved with Sequelae]
  - Iritis [Recovering/Resolving]
  - Corneal lesion [Recovering/Resolving]

NARRATIVE: CASE EVENT DATE: 20231111
